FAERS Safety Report 7216492-9 (Version None)
Quarter: 2011Q1

REPORT INFORMATION
  Report Type: 
  Country: None (occurrence: None)
  Receive Date: 20110107
  Receipt Date: 20101229
  Transmission Date: 20110831
  Serious: Yes (Hospitalization, Other)
  Sender: FDA-Public Use
  Company Number: PHHY2009TW60919

PATIENT

DRUGS (1)
  1. GLEEVEC [Suspect]
     Indication: GASTROINTESTINAL STROMAL TUMOUR
     Dosage: 400 MG/ 600 MG DAILY DOSE
     Route: 048
     Dates: start: 20080610

REACTIONS (11)
  - DYSPHAGIA [None]
  - OEDEMA [None]
  - LACRIMATION INCREASED [None]
  - ABDOMINAL PAIN [None]
  - CHOLELITHIASIS [None]
  - GASTROOESOPHAGEAL REFLUX DISEASE [None]
  - EYELID OEDEMA [None]
  - DRY EYE [None]
  - PLEURAL EFFUSION [None]
  - DYSURIA [None]
  - ORBITAL OEDEMA [None]
